FAERS Safety Report 8219713-9 (Version None)
Quarter: 2012Q1

REPORT INFORMATION
  Report Type: 
  Country: None (occurrence: None)
  Receive Date: 20120319
  Receipt Date: 20120126
  Transmission Date: 20120608
  Serious: Yes (Other)
  Sender: FDA-Public Use
  Company Number: US-ROCHE-1034050

PATIENT
  Sex: Male
  Weight: 63.56 kg

DRUGS (7)
  1. ACCUTANE [Suspect]
     Indication: ACNE
     Route: 048
     Dates: start: 20051111
  2. SOTRET [Suspect]
     Dates: start: 20050405
  3. SOTRET [Suspect]
     Indication: ACNE
     Route: 048
     Dates: start: 20051111
  4. BACTROBAN [Concomitant]
  5. ZYRTEC [Concomitant]
  6. ACCUTANE [Suspect]
     Dates: start: 20050405
  7. CLOBEX [Concomitant]

REACTIONS (6)
  - ILEITIS [None]
  - CHEILOSIS [None]
  - INFLAMMATORY BOWEL DISEASE [None]
  - COLITIS ULCERATIVE [None]
  - COLITIS [None]
  - HAEMATOCHEZIA [None]
